FAERS Safety Report 6435027-1 (Version None)
Quarter: 2009Q4

REPORT INFORMATION
  Report Type: 
  Country: None (occurrence: None)
  Receive Date: 20091110
  Receipt Date: 20091030
  Transmission Date: 20100525
  Serious: Yes (Hospitalization)
  Sender: FDA-Public Use
  Company Number: PHHY2009CA47391

PATIENT
  Sex: Male

DRUGS (1)
  1. ALISKIREN ALI+ [Suspect]
     Dosage: UNK
     Dates: start: 20090519, end: 20090619

REACTIONS (4)
  - HAEMORRHAGE [None]
  - HYPOTENSION [None]
  - INGUINAL HERNIA [None]
  - INGUINAL HERNIA REPAIR [None]
